FAERS Safety Report 9242727 (Version 2)
Quarter: 2013Q2

REPORT INFORMATION
  Report Type: Spontaneous
  Country: DE (occurrence: DE)
  Receive Date: 20130419
  Receipt Date: 20130523
  Transmission Date: 20140414
  Serious: Yes (Other)
  Sender: FDA-Public Use
  Company Number: DE-ROCHE-1215963

PATIENT
  Sex: Male
  Weight: 83 kg

DRUGS (12)
  1. XELODA [Suspect]
     Indication: COLON CANCER
     Route: 048
     Dates: start: 20130219, end: 20130402
  2. TORASEMIDE [Concomitant]
     Indication: HYPERTENSION
     Route: 065
  3. ENALAPRIL [Concomitant]
     Indication: HYPERTENSION
  4. ENALAPRIL [Concomitant]
     Indication: CORONARY ARTERY DISEASE
  5. DIGIMED [Concomitant]
     Indication: CORONARY ARTERY DISEASE
  6. LANSOPRAZOLE [Concomitant]
     Indication: GASTROOESOPHAGEAL REFLUX DISEASE
  7. L-THYROXIN [Concomitant]
     Indication: HYPOTHYROIDISM
  8. XARELTO [Concomitant]
     Indication: EMBOLISM
  9. OXYCODON [Concomitant]
     Indication: PAIN
  10. CITALOPRAM [Concomitant]
     Indication: DEPRESSION
  11. MIRTAZAPINE [Concomitant]
     Indication: DEPRESSION
  12. GABAPENTIN [Concomitant]
     Indication: NEURALGIA

REACTIONS (1)
  - Blood thyroid stimulating hormone increased [Recovering/Resolving]
